FAERS Safety Report 6336728-6 (Version None)
Quarter: 2009Q3

REPORT INFORMATION
  Report Type: 
  Country: None (occurrence: None)
  Receive Date: 20090901
  Receipt Date: 20090820
  Transmission Date: 20100115
  Serious: Yes (Other)
  Sender: FDA-Public Use
  Company Number: US-PFIZER INC-2009243548

PATIENT
  Sex: Female
  Weight: 119.27 kg

DRUGS (1)
  1. LYRICA [Suspect]
     Indication: FIBROMYALGIA
     Dosage: 200 MG, 1X/DAY
     Route: 048
     Dates: start: 20090101

REACTIONS (10)
  - ARTHRITIS [None]
  - DRUG INEFFECTIVE [None]
  - FLUID RETENTION [None]
  - HYPERSENSITIVITY [None]
  - MIGRAINE [None]
  - SPINAL DISORDER [None]
  - THINKING ABNORMAL [None]
  - THROMBOSIS [None]
  - WEIGHT INCREASED [None]
  - WITHDRAWAL SYNDROME [None]
